FAERS Safety Report 6337510-6 (Version None)
Quarter: 2009Q3

REPORT INFORMATION
  Report Type: 
  Country: None (occurrence: None)
  Receive Date: 20090902
  Receipt Date: 20090825
  Transmission Date: 20100115
  Serious: Yes (Other)
  Sender: FDA-Public Use
  Company Number: PHHY2009BR36768

PATIENT
  Age: 16 Year
  Sex: Male
  Weight: 70 kg

DRUGS (1)
  1. DICLOFENAC SODIUM [Suspect]
     Dosage: 70 MG, UNK
     Route: 048

REACTIONS (3)
  - ERYTHEMA [None]
  - HYPERSENSITIVITY [None]
  - RASH MACULAR [None]
